FAERS Safety Report 25237774 (Version 1)
Quarter: 2025Q2

REPORT INFORMATION
  Report Type: Spontaneous
  Country: US (occurrence: US)
  Receive Date: 20250425
  Receipt Date: 20250425
  Transmission Date: 20250716
  Serious: Yes (Hospitalization, Other)
  Sender: BAXTER
  Company Number: US-BAXTER-2025BAX014321

PATIENT
  Age: 1 Year
  Sex: Male

DRUGS (3)
  1. CYCLOPHOSPHAMIDE [Suspect]
     Active Substance: CYCLOPHOSPHAMIDE
     Indication: Immunosuppressant drug therapy
     Route: 065
     Dates: start: 20170724, end: 20170731
  2. ALDURAZYME [Suspect]
     Active Substance: LARONIDASE
     Indication: Mucopolysaccharidosis I
     Route: 041
     Dates: start: 20170403
  3. BUSULFAN [Suspect]
     Active Substance: BUSULFAN
     Indication: Immunosuppressant drug therapy
     Route: 065
     Dates: start: 20170724, end: 20170731

REACTIONS (14)
  - Seizure [Recovering/Resolving]
  - Pulmonary oedema [Recovering/Resolving]
  - Bacterial infection [Recovering/Resolving]
  - Bacterial test positive [Recovering/Resolving]
  - Hepatomegaly [Recovering/Resolving]
  - Vomiting [Recovering/Resolving]
  - Lumbar puncture [Recovering/Resolving]
  - Abdominal distension [Recovering/Resolving]
  - Oxygen saturation decreased [Recovering/Resolving]
  - Swelling [Recovering/Resolving]
  - Dyspnoea [Recovering/Resolving]
  - Cough [Recovering/Resolving]
  - Pyrexia [Recovering/Resolving]
  - Diarrhoea [Recovering/Resolving]

NARRATIVE: CASE EVENT DATE: 20170820
